FAERS Safety Report 14972223 (Version 2)
Quarter: 2018Q2

REPORT INFORMATION
  Report Type: Report from Study
  Country: None (occurrence: US)
  Receive Date: 20180605
  Receipt Date: 20180626
  Transmission Date: 20180711
  Serious: Yes (Life-Threatening, Hospitalization, Other)
  Sender: FDA-Public Use
  Company Number: US-ABBVIE-18K-163-2376013-00

PATIENT
  Age: 67 Year
  Sex: Female
  Weight: 79 kg

DRUGS (3)
  1. OXYCODONE [Concomitant]
     Active Substance: OXYCODONE
     Indication: PAIN
  2. HUMIRA [Suspect]
     Active Substance: ADALIMUMAB
     Indication: RHEUMATOID ARTHRITIS
     Route: 058
     Dates: start: 2017, end: 20180509
  3. METHOTREXATE. [Concomitant]
     Active Substance: METHOTREXATE
     Indication: RHEUMATOID ARTHRITIS

REACTIONS (13)
  - Apparent death [Unknown]
  - Sepsis [Recovered/Resolved]
  - Diarrhoea [Recovered/Resolved]
  - Multiple organ dysfunction syndrome [Unknown]
  - Renal failure [Recovered/Resolved]
  - Hypotension [Recovered/Resolved]
  - Vomiting [Recovered/Resolved]
  - Immunodeficiency [Not Recovered/Not Resolved]
  - Infectious colitis [Recovered/Resolved]
  - Intestinal mucosal atrophy [Recovered/Resolved]
  - Dehydration [Recovered/Resolved]
  - Skin discolouration [Recovered/Resolved]
  - Cold sweat [Recovered/Resolved]

NARRATIVE: CASE EVENT DATE: 2018
